FAERS Safety Report 6126318-2 (Version None)
Quarter: 2009Q1

REPORT INFORMATION
  Report Type: 
  Country: None (occurrence: None)
  Receive Date: 20090320
  Receipt Date: 20090318
  Transmission Date: 20090719
  Serious: Yes (Other)
  Sender: FDA-Public Use
  Company Number: BR-ALLERGAN-0903682US

PATIENT
  Sex: Male

DRUGS (2)
  1. BOTULINUM TOXIN TYPE A [Suspect]
     Indication: NEUROGENIC BLADDER
     Dosage: UNK, SINGLE
     Route: 030
     Dates: start: 20090121, end: 20090121
  2. BLINDED PLACEBO [Suspect]
     Indication: NEUROGENIC BLADDER
     Dosage: UNK, SINGLE
     Route: 030
     Dates: start: 20090121, end: 20090121

REACTIONS (1)
  - MUSCULAR WEAKNESS [None]
